FAERS Safety Report 12677748 (Version 2)
Quarter: 2016Q3

REPORT INFORMATION
  Report Type: Report from Study
  Country: CA (occurrence: CA)
  Receive Date: 20160823
  Receipt Date: 20160908
  Transmission Date: 20161109
  Serious: Yes (Hospitalization, Other)
  Sender: FDA-Public Use
  Company Number: CA-ABBVIE-16K-028-1704893-00

PATIENT
  Age: 57 Year
  Sex: Male
  Weight: 86 kg

DRUGS (2)
  1. HUMIRA [Suspect]
     Active Substance: ADALIMUMAB
     Route: 058
     Dates: start: 20160810
  2. HUMIRA [Suspect]
     Active Substance: ADALIMUMAB
     Indication: ANKYLOSING SPONDYLITIS
     Route: 058
     Dates: start: 201605, end: 20160629

REACTIONS (6)
  - Gallbladder non-functioning [Not Recovered/Not Resolved]
  - Cholelithiasis [Recovered/Resolved]
  - Abdominal pain upper [Not Recovered/Not Resolved]
  - Pancreatitis [Recovered/Resolved]
  - Cholecystitis [Recovered/Resolved]
  - Gastritis [Unknown]

NARRATIVE: CASE EVENT DATE: 2016
